FAERS Safety Report 7221418-8 (Version None)
Quarter: 2011Q1

REPORT INFORMATION
  Report Type: 
  Country: None (occurrence: None)
  Receive Date: 20110112
  Receipt Date: 20110104
  Transmission Date: 20110831
  Serious: Yes (Hospitalization, Other)
  Sender: FDA-Public Use
  Company Number: US-RB-018572-11

PATIENT
  Age: 30 Year
  Sex: Female

DRUGS (1)
  1. DELSYM CHILDREN'S ORANGE [Suspect]
     Indication: LARYNGITIS
     Dosage: PATIENT CONSUMED TWO BOTTLES WITHIN 72 HOURS ON ??-DEC-2010
     Route: 048

REACTIONS (5)
  - OFF LABEL USE [None]
  - MANIA [None]
  - OVERDOSE [None]
  - CONFUSIONAL STATE [None]
  - THIRST [None]
